FAERS Safety Report 8445369-6 (Version None)
Quarter: 2012Q2

REPORT INFORMATION
  Report Type: 
  Country: None (occurrence: None)
  Receive Date: 20120611
  Receipt Date: 20120529
  Transmission Date: 20120825
  Serious: Yes (Congenital Anomaly)
  Sender: FDA-Public Use
  Company Number: 2012MA006824

PATIENT
  Age: 8 Month
  Sex: Male

DRUGS (2)
  1. FLUOXETINE HYDROCHLORIDE [Suspect]
     Indication: DEPRESSION
     Dosage: 30 MG;QD;TRPL
     Route: 064
     Dates: start: 20070202
  2. SRETIDE DISKUS [Concomitant]

REACTIONS (1)
  - PSYCHOMOTOR SKILLS IMPAIRED [None]
